FAERS Safety Report 8815056 (Version 1)
Quarter: 2012Q4

REPORT INFORMATION
  Report Type: 
  Country: US (occurrence: US)
  Receive Date: 20120928
  Receipt Date: 20120928
  Transmission Date: 20130627
  Serious: Yes (Hospitalization)
  Sender: FDA-Public Use
  Company Number: US-ARROW-2012-16325

PATIENT
  Age: 55 Year
  Sex: Male

DRUGS (12)
  1. NORCO [Suspect]
     Indication: PRODUCT USED FOR UNKNOWN INDICATION
     Dosage: 7.5 miligram
     Route: 065
     Dates: start: 20120720, end: 20120721
  2. METFORMIN HYDROCHLORIDE (WATSON LABORATORIES) [Suspect]
     Indication: TYPE 2 DIABETES MELLITUS
     Dosage: 2000 mg UNK
     Route: 065
  3. PIOGLITAZONE [Suspect]
     Indication: TYPE 2 DIABETES MELLITUS
     Dosage: 15 Milligram, UNK
     Route: 065
  4. GLIPIZIDE [Suspect]
     Indication: TYPE 2 DIABETES MELLITUS
     Dosage: 10 mg, UNK
     Route: 065
     Dates: start: 20120719, end: 20120719
  5. OXYCODONE AND ACETAMINOPHEN [Suspect]
     Indication: PRODUCT USED FOR UNKNOWN INDICATION
     Dosage: 10 mg
     Route: 065
     Dates: start: 20120721, end: 20120722
  6. RAMIPRIL [Suspect]
     Indication: PRODUCT USED FOR UNKNOWN INDICATION
     Dosage: UNK
     Route: 065
  7. ACETAMINOPHEN [Suspect]
     Indication: PRODUCT USED FOR UNKNOWN INDICATION
     Dosage: 650 Milligram
     Route: 065
     Dates: start: 20120719, end: 20120719
  8. PLACEBO [Suspect]
     Indication: TYPE 2 DIABETES MELLITUS
     Dosage: UNK
     Route: 065
     Dates: start: 20110426
  9. HUMULIN NOS [Suspect]
     Indication: TYPE 2 DIABETES MELLITUS
     Dosage: 100 international unit
     Route: 065
     Dates: start: 20120719, end: 20120724
  10. SAXAGLIPTIN [Suspect]
     Indication: TYPE 2 DIABETES MELLITUS
     Dosage: UNK
     Route: 065
     Dates: start: 20110426
  11. ASPIRIN [Concomitant]
     Indication: PRODUCT USED FOR UNKNOWN INDICATION
     Dosage: UNK
     Route: 065
  12. TRAMADOL HCL [Concomitant]
     Indication: PRODUCT USED FOR UNKNOWN INDICATION
     Dosage: UNK
     Route: 065
     Dates: start: 20120721, end: 20120724

REACTIONS (2)
  - Renal failure acute [Recovered/Resolved]
  - Confusional state [Recovered/Resolved]
